FAERS Safety Report 6881457-3 (Version None)
Quarter: 2010Q3

REPORT INFORMATION
  Report Type: 
  Country: None (occurrence: None)
  Receive Date: 20100728
  Receipt Date: 20100728
  Transmission Date: 20110219
  Serious: Yes (Hospitalization)
  Sender: FDA-Public Use
  Company Number: None

PATIENT
  Age: 52 Year
  Sex: Male

DRUGS (1)
  1. PHENELZINE SULFATE (NARDIL) [Suspect]
     Indication: DEPRESSION
     Dates: start: 20100601, end: 20100625

REACTIONS (4)
  - DIZZINESS [None]
  - HEADACHE [None]
  - HYPOTENSION [None]
  - SYNCOPE [None]
